FAERS Safety Report 16927087 (Version 1)
Quarter: 2019Q4

REPORT INFORMATION
  Report Type: Spontaneous
  Country: US (occurrence: US)
  Receive Date: 20191016
  Receipt Date: 20191016
  Transmission Date: 20200122
  Serious: Yes (Other)
  Sender: FDA-Public Use
  Company Number: US-ELI_LILLY_AND_COMPANY-US201910004622

PATIENT
  Sex: Female

DRUGS (2)
  1. BASAGLAR [Suspect]
     Active Substance: INSULIN GLARGINE
     Dosage: 30 U, BID(MORNING AND NIGHT)
     Route: 058
     Dates: start: 201905
  2. BASAGLAR [Suspect]
     Active Substance: INSULIN GLARGINE
     Indication: TYPE 2 DIABETES MELLITUS
     Dosage: 30 U, BID(MORNING AND NIGHT)
     Route: 058
     Dates: start: 201905

REACTIONS (7)
  - Back pain [Unknown]
  - Fall [Unknown]
  - Transient ischaemic attack [Unknown]
  - Spinal cord injury [Unknown]
  - Inappropriate schedule of product administration [Unknown]
  - Cataract [Unknown]
  - Tremor [Unknown]

NARRATIVE: CASE EVENT DATE: 201907
